FAERS Safety Report 23808245 (Version 1)
Quarter: 2024Q2

REPORT INFORMATION
  Report Type: Report from Study
  Country: US (occurrence: US)
  Receive Date: 20240502
  Receipt Date: 20240502
  Transmission Date: 20240716
  Serious: Yes (Other)
  Sender: FDA-Public Use
  Company Number: US-UCBSA-2024021176

PATIENT
  Sex: Female

DRUGS (6)
  1. BRIVARACETAM [Suspect]
     Active Substance: BRIVARACETAM
     Indication: Epilepsy
     Dosage: 75 MILLIGRAM, 2X/DAY (BID) FOR 30 DAYS
     Route: 048
  2. NAYZILAM [Suspect]
     Active Substance: MIDAZOLAM
     Indication: Product used for unknown indication
     Dosage: TAKE 1 SPRAY(S) EVERY 72 HOURS BY NASAL ROUTE AS NEEDED FOR 30 DAYS.
     Route: 045
  3. ALPRAZOLAM [Concomitant]
     Active Substance: ALPRAZOLAM
     Indication: Anxiety
     Dosage: 1 DOSAGE FORM (1 DOSAGE FORM (0.25 MG TABLET)), EVERY 6 HOURS AS NEEDED (PRN)
     Route: 048
  4. AMOXICILLIN\CLAVULANIC ACID [Concomitant]
     Active Substance: AMOXICILLIN\CLAVULANIC ACID
     Indication: Product used for unknown indication
     Dosage: 1 DOSAGE FORM (TABLET), 2X/DAY (BID)
     Route: 048
  5. FLUCONAZOLE [Concomitant]
     Active Substance: FLUCONAZOLE
     Indication: Product used for unknown indication
     Dosage: 1 DOSAGE FORM (TABLET), ONE TIME DOSE
     Route: 048
  6. METRONIDAZOLE [Concomitant]
     Active Substance: METRONIDAZOLE
     Indication: Product used for unknown indication
     Dosage: 0.5 DOSAGE FORM (1/2 (ONE-HALF) TABLET ), 2X/DAY (BID) FOR 3 DAYS
     Route: 048

REACTIONS (9)
  - Seizure [Unknown]
  - Cough [Unknown]
  - Abdominal pain [Unknown]
  - Fatigue [Unknown]
  - Increased tendency to bruise [Unknown]
  - Seasonal allergy [Unknown]
  - Scalloped tongue [Unknown]
  - Nasal mucosal disorder [Unknown]
  - Intentional dose omission [Unknown]
